FAERS Safety Report 9481410 (Version 2)
Quarter: 2013Q3

REPORT INFORMATION
  Report Type: Spontaneous
  Country: US (occurrence: US)
  Receive Date: 20130828
  Receipt Date: 20130828
  Transmission Date: 20140515
  Serious: Yes (Hospitalization)
  Sender: FDA-Public Use
  Company Number: US-AMGEN-KDL160761

PATIENT
  Age: 57 Year
  Sex: Female

DRUGS (21)
  1. ENBREL [Suspect]
     Indication: RHEUMATOID ARTHRITIS
     Dosage: 25 MG, 2 TIMES/WK
     Route: 058
     Dates: start: 20030305
  2. PREDNISONE [Concomitant]
     Dosage: 9 MG, QD
     Route: 048
  3. FUROSEMIDE [Concomitant]
     Dosage: 40 MG, BID
     Route: 048
  4. WARFARIN SODIUM [Concomitant]
     Dosage: 2.5 MG, QD
  5. FOLIC ACID [Concomitant]
     Dosage: 1 MG, QD
  6. RANITIDINE HYDROCHLORIDE [Concomitant]
     Dosage: 150 MG, BID
     Route: 048
  7. POTASSIUM CHLORIDE [Concomitant]
     Dosage: 10 MEQ, UNK
     Route: 048
  8. ATORVASTATIN CALCIUM [Concomitant]
     Dosage: 20 MG, QD
  9. LEVOTHRYROXINE SODIUM [Concomitant]
     Dosage: 75 MG, QD
  10. LOSARTAN POTASSIUM [Concomitant]
     Dosage: 25 MG, QD
  11. METHOTREXATE [Concomitant]
     Dosage: 25 MG, QWK
     Route: 058
  12. CYCLOBENZAPRINE [Concomitant]
     Dosage: 10 MG, PRN
  13. ESTROGENS CONJUGATED [Concomitant]
     Dosage: .9 MG, QD
     Route: 048
  14. ALENDRONATE SODIUM [Concomitant]
     Dosage: 70 MG, QWK
  15. ASCORBIC ACID [Concomitant]
     Dosage: 500 MG, QD
  16. CALCIUM [Concomitant]
     Dosage: 500 MG, QD
  17. TOCOPHEROL [Concomitant]
     Dosage: 400 MG, BID
  18. IRON [Concomitant]
     Dosage: 27 MG, BID
     Route: 048
  19. DOCUSATE SODIUM [Concomitant]
     Dosage: 100 MG, BID
     Route: 048
  20. TRIAMCINOLONE ACETONIDE [Concomitant]
     Dosage: UNK UNK, BID
  21. ALBUTEROL SULFATE [Concomitant]
     Dosage: UNK UNK, PRN

REACTIONS (11)
  - Pleural effusion [Recovered/Resolved]
  - Sinusitis [Unknown]
  - Dyspnoea [Unknown]
  - Arthralgia [Unknown]
  - Condition aggravated [Unknown]
  - Atelectasis [Unknown]
  - Myocardial infarction [Unknown]
  - Pneumonia [Unknown]
  - Musculoskeletal pain [Unknown]
  - Pruritus [Unknown]
  - Constipation [Unknown]
